FAERS Safety Report 6171581-5 (Version None)
Quarter: 2009Q2

REPORT INFORMATION
  Report Type: 
  Country: None (occurrence: None)
  Receive Date: 20090429
  Receipt Date: 20090420
  Transmission Date: 20091009
  Serious: Yes (Other)
  Sender: FDA-Public Use
  Company Number: GB-ASTRAZENECA-2009GB00918

PATIENT
  Age: 75 Year
  Sex: Female
  Weight: 76 kg

DRUGS (10)
  1. ESOMEPRAZOLE [Suspect]
     Dosage: 40MG
     Route: 042
  2. AMOXICILLIN [Interacting]
     Indication: LOWER RESPIRATORY TRACT INFECTION
     Route: 048
     Dates: start: 20090325, end: 20090326
  3. AUGMENTIN '125' [Interacting]
     Indication: LOWER RESPIRATORY TRACT INFECTION
     Dosage: 1.2G
     Route: 042
     Dates: start: 20090318, end: 20090322
  4. AUGMENTIN '125' [Interacting]
     Route: 048
     Dates: start: 20090323, end: 20090324
  5. KEPPRA [Interacting]
     Indication: EPILEPSY
     Route: 042
  6. KEPPRA [Interacting]
     Dosage: LONG TERM
     Route: 048
  7. FERROUS FUMARATE [Concomitant]
     Indication: IRON DEFICIENCY ANAEMIA
     Dosage: 280MG
     Route: 048
  8. LAMOTRIGINE [Concomitant]
  9. LANSOPRAZOLE [Concomitant]
     Dosage: 30MG
     Route: 048
  10. SENNA [Concomitant]
     Dosage: 15MG
     Route: 048

REACTIONS (3)
  - DRUG INTERACTION [None]
  - JAUNDICE [None]
  - LIVER FUNCTION TEST ABNORMAL [None]
